FAERS Safety Report 6699792-0 (Version None)
Quarter: 2010Q2

REPORT INFORMATION
  Report Type: 
  Country: None (occurrence: None)
  Receive Date: 20100428
  Receipt Date: 20100420
  Transmission Date: 20101027
  Serious: Yes (Other)
  Sender: FDA-Public Use
  Company Number: IL-TYCO HEALTHCARE/MALLINCKRODT-T201001083

PATIENT
  Age: 55 Year
  Sex: Male

DRUGS (1)
  1. SODIUM IODIDE I 131 [Suspect]
     Dosage: UNK

REACTIONS (1)
  - CHRONIC MYELOID LEUKAEMIA [None]
